FAERS Safety Report 4872512-8 (Version None)
Quarter: 2005Q4

REPORT INFORMATION
  Report Type: 
  Country: None (occurrence: None)
  Receive Date: 20051230
  Receipt Date: 20051230
  Transmission Date: 20060501
  Serious: Yes (Life-Threatening, Disabling)
  Sender: FDA-Public Use
  Company Number: None

PATIENT
  Age: 57 Year
  Sex: Male
  Weight: 82 kg

DRUGS (2)
  1. CIALIS [Suspect]
     Indication: ERECTILE DYSFUNCTION
     Dosage: 10MG   ONCE   PO  (ONE TIME DOSE)
     Route: 048
     Dates: start: 20051216, end: 20051216
  2. NITROGLYCERIN [Suspect]
     Indication: ACUTE MYOCARDIAL INFARCTION
     Dosage: 200MCG   ONCE   INTRACORONARY   (ONE TIME DOSE)
     Route: 022
     Dates: start: 20051218, end: 20051218

REACTIONS (3)
  - ACUTE MYOCARDIAL INFARCTION [None]
  - HYPOTENSION [None]
  - THROMBOSIS IN DEVICE [None]
